FAERS Safety Report 10558841 (Version 5)
Quarter: 2016Q2

REPORT INFORMATION
  Report Type: Report from Study
  Country: KR (occurrence: KR)
  Receive Date: 20141031
  Receipt Date: 20160420
  Transmission Date: 20160815
  Serious: Yes (Hospitalization)
  Sender: FDA-Public Use
  Company Number: KR-ROCHE-1481282

PATIENT
  Age: 62 Year
  Sex: Male
  Weight: 45.5 kg

DRUGS (95)
  1. TRASTUZUMAB [Suspect]
     Active Substance: TRASTUZUMAB
     Dosage: MAINTAINANCE DOSE: 299 MG?MOST RECENT DOSE ON 13/OCT/2014.
     Route: 042
  2. EMEND [Concomitant]
     Active Substance: APREPITANT
     Indication: NAUSEA
     Route: 048
     Dates: start: 20140806
  3. DEXAMETHASONE. [Concomitant]
     Active Substance: DEXAMETHASONE
     Dosage: SELECT IF ONGOING=NO
     Route: 048
     Dates: start: 20141112, end: 20141114
  4. DEXAMETHASONE. [Concomitant]
     Active Substance: DEXAMETHASONE
     Dosage: SELECT IF ONGOING=NO
     Route: 042
     Dates: start: 20150313, end: 20150313
  5. ZANTAC [Concomitant]
     Active Substance: RANITIDINE HYDROCHLORIDE
     Route: 048
     Dates: start: 20150101, end: 20150103
  6. ZANTAC [Concomitant]
     Active Substance: RANITIDINE HYDROCHLORIDE
     Route: 048
     Dates: start: 20150121, end: 20150123
  7. REMERON [Concomitant]
     Active Substance: MIRTAZAPINE
     Route: 048
     Dates: start: 20141209, end: 20150119
  8. WINUF [Concomitant]
     Indication: DECREASED APPETITE
     Route: 042
     Dates: start: 20141029, end: 20141103
  9. LEXAPRO [Concomitant]
     Active Substance: ESCITALOPRAM OXALATE
     Route: 048
     Dates: start: 20141231, end: 20150426
  10. PRBC [Concomitant]
     Dosage: DOSE: 3 (OTHER)
     Route: 042
     Dates: start: 20150303, end: 20150303
  11. NASEA [Concomitant]
     Active Substance: RAMOSETRON HYDROCHLORIDE
     Indication: NAUSEA
     Route: 042
     Dates: start: 20140806
  12. NASEA [Concomitant]
     Active Substance: RAMOSETRON HYDROCHLORIDE
     Route: 042
     Dates: start: 20150512, end: 20150512
  13. DEXAMETHASONE. [Concomitant]
     Active Substance: DEXAMETHASONE
     Indication: NAUSEA
     Route: 042
     Dates: start: 20140406
  14. SODIUM BICARBONATE. [Concomitant]
     Active Substance: SODIUM BICARBONATE
     Indication: STOMATITIS
     Route: 050
     Dates: start: 20140904
  15. TARGIN [Concomitant]
     Active Substance: NALOXONE HYDROCHLORIDE\OXYCODONE HYDROCHLORIDE
     Indication: ABDOMINAL PAIN UPPER
     Dosage: STRENGTH: 10/5 MG
     Route: 048
     Dates: start: 20141006, end: 20141010
  16. TARGIN [Concomitant]
     Active Substance: NALOXONE HYDROCHLORIDE\OXYCODONE HYDROCHLORIDE
     Dosage: STRENGTH: 20/10 MG
     Route: 048
     Dates: start: 20141004, end: 20141005
  17. LIDOCAIN [Concomitant]
     Active Substance: LIDOCAINE
     Indication: STOMATITIS
     Route: 050
     Dates: start: 20140929, end: 20140930
  18. PRBC [Concomitant]
     Indication: ANAEMIA
     Route: 042
     Dates: start: 20150120, end: 20150120
  19. SEROQUEL [Concomitant]
     Active Substance: QUETIAPINE FUMARATE
     Route: 048
     Dates: start: 20150210, end: 20150426
  20. SEROQUEL [Concomitant]
     Active Substance: QUETIAPINE FUMARATE
     Route: 048
     Dates: start: 20150629
  21. CISPLATIN. [Suspect]
     Active Substance: CISPLATIN
     Indication: HER-2 POSITIVE GASTRIC CANCER
     Dosage: MOST RECENT DOSE ON 13/OCT/2014
     Route: 042
     Dates: start: 20140806, end: 20141013
  22. EMEND [Concomitant]
     Active Substance: APREPITANT
     Route: 048
     Dates: start: 20150313, end: 20150313
  23. DEXAMETHASONE. [Concomitant]
     Active Substance: DEXAMETHASONE
     Dosage: SELECT IF ONGOING=NO
     Route: 048
     Dates: start: 20150407, end: 20150409
  24. LASIX [Concomitant]
     Active Substance: FUROSEMIDE
     Route: 042
     Dates: start: 20150313, end: 20150313
  25. GASTER (SOUTH KOREA) [Concomitant]
     Indication: ABDOMINAL PAIN UPPER
     Route: 042
     Dates: start: 20140929, end: 20140930
  26. DIFLUCAN [Concomitant]
     Active Substance: FLUCONAZOLE
     Indication: OESOPHAGEAL CANDIDIASIS
     Route: 042
     Dates: start: 20140929, end: 20140929
  27. DIFLUCAN [Concomitant]
     Active Substance: FLUCONAZOLE
     Indication: OESOPHAGEAL CANDIDIASIS
     Route: 042
     Dates: start: 20140930, end: 20141001
  28. ZANTAC [Concomitant]
     Active Substance: RANITIDINE HYDROCHLORIDE
     Route: 048
     Dates: start: 20150314, end: 20150316
  29. ZANTAC [Concomitant]
     Active Substance: RANITIDINE HYDROCHLORIDE
     Route: 048
     Dates: start: 20150407, end: 20150409
  30. EMEND [Concomitant]
     Active Substance: APREPITANT
     Route: 048
     Dates: start: 20150101, end: 20150102
  31. NASEA [Concomitant]
     Active Substance: RAMOSETRON HYDROCHLORIDE
     Indication: VOMITING
     Route: 042
     Dates: start: 20150120, end: 20150120
  32. DEXAMETHASONE. [Concomitant]
     Active Substance: DEXAMETHASONE
     Dosage: SELECT IF ONGOING=NO
     Route: 048
     Dates: start: 20150101, end: 20150101
  33. DEXAMETHASONE. [Concomitant]
     Active Substance: DEXAMETHASONE
     Dosage: SELECT IF ONGOING=NO
     Route: 048
     Dates: start: 20150121, end: 20150123
  34. DEXAMETHASONE. [Concomitant]
     Active Substance: DEXAMETHASONE
     Dosage: SELECT IF ONGOING=NO
     Route: 042
     Dates: start: 20150512, end: 20150512
  35. MACPERAN [Concomitant]
     Active Substance: METOCLOPRAMIDE HYDROCHLORIDE
     Indication: NAUSEA
     Route: 048
     Dates: start: 20140830
  36. MAGNESIUM SULFATE. [Concomitant]
     Active Substance: MAGNESIUM SULFATE
     Route: 042
     Dates: start: 20150406, end: 20150406
  37. MAGNESIUM SULFATE. [Concomitant]
     Active Substance: MAGNESIUM SULFATE
     Route: 042
     Dates: start: 20150512, end: 20150512
  38. ZANTAC [Concomitant]
     Active Substance: RANITIDINE HYDROCHLORIDE
     Route: 048
     Dates: start: 20141112, end: 20141114
  39. ATIVAN [Concomitant]
     Active Substance: LORAZEPAM
     Route: 048
     Dates: start: 20141117, end: 20141230
  40. GINEXIN-F [Concomitant]
     Indication: COGNITIVE DISORDER
     Route: 048
     Dates: start: 20141230, end: 20150119
  41. PENIRAMIN [Concomitant]
     Dosage: INDICATION: TRANSFUTION
     Route: 042
     Dates: start: 20150120, end: 20150120
  42. PENIRAMIN [Concomitant]
     Dosage: INDICATION: ALLERGY REACTION 1 AMPULE
     Route: 042
     Dates: start: 20150609, end: 20150609
  43. SEROQUEL [Concomitant]
     Active Substance: QUETIAPINE FUMARATE
     Route: 048
     Dates: start: 20150427
  44. MAGNESIUM OXIDE. [Concomitant]
     Active Substance: MAGNESIUM OXIDE
     Indication: CONSTIPATION
     Route: 048
     Dates: start: 20150303
  45. PLACEBO [Suspect]
     Active Substance: UNSPECIFIED INGREDIENT
     Indication: HER-2 POSITIVE GASTRIC CANCER
     Dosage: MOST RECENT DOSE ON 13/OCT/2014
     Route: 042
     Dates: start: 20140806
  46. EMEND [Concomitant]
     Active Substance: APREPITANT
     Route: 048
     Dates: start: 20150121, end: 20150122
  47. EMEND [Concomitant]
     Active Substance: APREPITANT
     Route: 048
     Dates: start: 20150406, end: 20150406
  48. NASEA [Concomitant]
     Active Substance: RAMOSETRON HYDROCHLORIDE
     Route: 042
     Dates: start: 20150406, end: 20150406
  49. DEXAMETHASONE. [Concomitant]
     Active Substance: DEXAMETHASONE
     Dosage: SELECT IF ONGOING=NO
     Route: 048
     Dates: start: 20150314, end: 20150316
  50. DEXAMETHASONE. [Concomitant]
     Active Substance: DEXAMETHASONE
     Dosage: SELECT IF ONGOING=NO
     Route: 048
     Dates: start: 20150406, end: 20150406
  51. DEXAMETHASONE. [Concomitant]
     Active Substance: DEXAMETHASONE
     Dosage: SELECT IF ONGOING=NO
     Route: 048
     Dates: start: 20150513, end: 20150515
  52. MACPERAN [Concomitant]
     Active Substance: METOCLOPRAMIDE HYDROCHLORIDE
     Route: 042
     Dates: start: 20141028, end: 20141029
  53. TARGIN [Concomitant]
     Active Substance: NALOXONE HYDROCHLORIDE\OXYCODONE HYDROCHLORIDE
     Dosage: STRENGTH: 40/20 MG
     Route: 048
     Dates: start: 20141001, end: 20141003
  54. MAGNESIUM SULFATE. [Concomitant]
     Active Substance: MAGNESIUM SULFATE
     Indication: ELECTROLYTE IMBALANCE
     Route: 042
     Dates: start: 20140829
  55. ULTRACET [Concomitant]
     Active Substance: ACETAMINOPHEN\TRAMADOL HYDROCHLORIDE
     Indication: HEADACHE
     Route: 048
     Dates: start: 20141001, end: 20141026
  56. MORPHINE HCL [Concomitant]
     Active Substance: MORPHINE HYDROCHLORIDE
     Indication: ABDOMINAL PAIN UPPER
     Route: 042
     Dates: start: 20140929, end: 20141001
  57. MORPHINE HCL [Concomitant]
     Active Substance: MORPHINE HYDROCHLORIDE
     Indication: CEREBRAL INFARCTION
     Route: 042
     Dates: start: 20141029, end: 20141103
  58. NYSTATIN. [Concomitant]
     Active Substance: NYSTATIN
     Indication: STOMATITIS
     Route: 050
     Dates: start: 20141001, end: 20141010
  59. ZANTAC [Concomitant]
     Active Substance: RANITIDINE HYDROCHLORIDE
     Route: 048
     Dates: start: 20150513, end: 20150515
  60. LEXAPRO [Concomitant]
     Active Substance: ESCITALOPRAM OXALATE
     Route: 048
     Dates: start: 20150427
  61. ULCERMINE [Concomitant]
     Indication: GASTRITIS
     Route: 048
     Dates: start: 20150120
  62. PENIRAMIN [Concomitant]
     Dosage: INDICATION: TRANSFUTION ALLERGY REACTION
     Route: 042
     Dates: start: 20150427, end: 20150427
  63. LYRICA [Concomitant]
     Active Substance: PREGABALIN
     Indication: NEUROPATHY PERIPHERAL
     Route: 048
     Dates: start: 20150630
  64. EMEND [Concomitant]
     Active Substance: APREPITANT
     Route: 048
     Dates: start: 20150407, end: 20150408
  65. NASEA [Concomitant]
     Active Substance: RAMOSETRON HYDROCHLORIDE
     Route: 042
     Dates: start: 20150313, end: 20150313
  66. LASIX [Concomitant]
     Active Substance: FUROSEMIDE
     Route: 042
     Dates: start: 20150512, end: 20150512
  67. MAGNESIUM SULFATE. [Concomitant]
     Active Substance: MAGNESIUM SULFATE
     Route: 042
     Dates: start: 20150120, end: 20150120
  68. IRCODON [Concomitant]
     Indication: HEADACHE
     Route: 048
     Dates: start: 20141006
  69. PRBC [Concomitant]
     Dosage: DOSE: 2 (OTHER)
     Route: 042
     Dates: start: 20150427, end: 20150427
  70. PRBC [Concomitant]
     Dosage: DOSE: 3 (OTHER)
     Route: 042
     Dates: start: 20150609, end: 20150609
  71. PENIRAMIN [Concomitant]
     Indication: NAUSEA
     Route: 042
     Dates: start: 20141028, end: 20141029
  72. SEROQUEL [Concomitant]
     Active Substance: QUETIAPINE FUMARATE
     Route: 048
     Dates: start: 20150427, end: 20150628
  73. ALBUMIN [Concomitant]
     Active Substance: ALBUMIN HUMAN
     Indication: HYPOALBUMINAEMIA
     Route: 042
     Dates: start: 20150727, end: 20150727
  74. TRASTUZUMAB [Suspect]
     Active Substance: TRASTUZUMAB
     Indication: HER-2 POSITIVE GASTRIC CANCER
     Dosage: LOADING DOSE
     Route: 042
     Dates: start: 20140806
  75. EMEND [Concomitant]
     Active Substance: APREPITANT
     Route: 048
     Dates: start: 20150120, end: 20150120
  76. EMEND [Concomitant]
     Active Substance: APREPITANT
     Route: 048
     Dates: start: 20150513, end: 20150514
  77. DEXAMETHASONE. [Concomitant]
     Active Substance: DEXAMETHASONE
     Indication: VOMITING
     Dosage: SELECT IF ONGOING=NO
     Route: 048
     Dates: start: 20141014, end: 20141016
  78. DEXAMETHASONE. [Concomitant]
     Active Substance: DEXAMETHASONE
     Dosage: SELECT IF ONGOING=NO
     Route: 048
     Dates: start: 20150120, end: 20150120
  79. LASIX [Concomitant]
     Active Substance: FUROSEMIDE
     Indication: HYPERVOLAEMIA
     Route: 042
     Dates: start: 20140829
  80. LASIX [Concomitant]
     Active Substance: FUROSEMIDE
     Route: 042
     Dates: start: 20150120, end: 20150120
  81. MAGNESIUM SULFATE. [Concomitant]
     Active Substance: MAGNESIUM SULFATE
     Route: 042
     Dates: start: 20150313, end: 20150313
  82. GASTER (SOUTH KOREA) [Concomitant]
     Indication: GASTRITIS
     Route: 042
     Dates: start: 20141028, end: 20141028
  83. PLUNAZOL [Concomitant]
     Indication: OESOPHAGEAL CANDIDIASIS
     Route: 048
     Dates: start: 20141001, end: 20141007
  84. ZANTAC [Concomitant]
     Active Substance: RANITIDINE HYDROCHLORIDE
     Indication: GASTRITIS
     Route: 048
     Dates: start: 20141014, end: 20141016
  85. REMERON [Concomitant]
     Active Substance: MIRTAZAPINE
     Indication: COGNITIVE DISORDER
     Route: 048
     Dates: start: 20141101, end: 20141116
  86. ATIVAN [Concomitant]
     Active Substance: LORAZEPAM
     Indication: COGNITIVE DISORDER
     Route: 048
     Dates: start: 20141117, end: 20150119
  87. SEROQUEL [Concomitant]
     Active Substance: QUETIAPINE FUMARATE
     Indication: COGNITIVE DISORDER
     Route: 048
     Dates: start: 20150120, end: 20150209
  88. CAPECITABINE. [Suspect]
     Active Substance: CAPECITABINE
     Indication: HER-2 POSITIVE GASTRIC CANCER
     Dosage: MOST RECENT DOSE ON 16/OCT/2014.
     Route: 048
     Dates: start: 20140806, end: 20141016
  89. EMEND [Concomitant]
     Active Substance: APREPITANT
     Indication: VOMITING
     Route: 048
     Dates: start: 20141014, end: 20141015
  90. EMEND [Concomitant]
     Active Substance: APREPITANT
     Route: 048
     Dates: start: 20141112, end: 20141113
  91. EMEND [Concomitant]
     Active Substance: APREPITANT
     Route: 048
     Dates: start: 20150314, end: 20150315
  92. EMEND [Concomitant]
     Active Substance: APREPITANT
     Route: 048
     Dates: start: 20150512, end: 20150512
  93. LASIX [Concomitant]
     Active Substance: FUROSEMIDE
     Route: 042
     Dates: start: 20150406, end: 20150406
  94. DUPHALAC-EASY [Concomitant]
     Indication: CONSTIPATION
     Route: 048
     Dates: start: 20141102
  95. LEXAPRO [Concomitant]
     Active Substance: ESCITALOPRAM OXALATE
     Indication: COGNITIVE DISORDER
     Route: 048
     Dates: start: 20141117, end: 20141230

REACTIONS (1)
  - Cerebral infarction [Recovered/Resolved]

NARRATIVE: CASE EVENT DATE: 20141026
